FAERS Safety Report 11693656 (Version 3)
Quarter: 2016Q1

REPORT INFORMATION
  Report Type: Spontaneous
  Country: AU (occurrence: AU)
  Receive Date: 20151103
  Receipt Date: 20160316
  Transmission Date: 20160525
  Serious: Yes (Other)
  Sender: FDA-Public Use
  Company Number: AU-PFIZER INC-2015369832

PATIENT
  Age: 67 Year
  Sex: Female

DRUGS (2)
  1. XELJANZ [Suspect]
     Active Substance: TOFACITINIB CITRATE
     Indication: RHEUMATOID ARTHRITIS
     Dosage: 5 MG, 2X/DAY
     Dates: start: 20150731
  2. METHOTREXATE [Concomitant]
     Active Substance: METHOTREXATE
     Dosage: 10MG- 1.5 TABS A WEEK

REACTIONS (6)
  - Blood cholesterol increased [Unknown]
  - Fatigue [Not Recovered/Not Resolved]
  - Weight increased [Unknown]
  - Depression [Unknown]
  - Lower respiratory tract infection [Unknown]
  - Drug ineffective [Unknown]

NARRATIVE: CASE EVENT DATE: 20151027
